FAERS Safety Report 5412293-2 (Version None)
Quarter: 2007Q3

REPORT INFORMATION
  Report Type: 
  Country: None (occurrence: None)
  Receive Date: 20070810
  Receipt Date: 20070810
  Transmission Date: 20080115
  Serious: Yes (Other)
  Sender: FDA-Public Use
  Company Number: None

PATIENT
  Age: 61 Year
  Sex: Male
  Weight: 100.6985 kg

DRUGS (1)
  1. ATENOLOL [Suspect]
     Indication: HYPERTENSION
     Dosage: 1 TABLET PER DAY PO
     Route: 048

REACTIONS (5)
  - DIZZINESS [None]
  - JOINT SWELLING [None]
  - LIMB DISCOMFORT [None]
  - OEDEMA PERIPHERAL [None]
  - WEIGHT INCREASED [None]
